FAERS Safety Report 21395830 (Version 1)
Quarter: 2022Q3

REPORT INFORMATION
  Report Type: Other
  Country: US (occurrence: None)
  Receive Date: 20220930
  Receipt Date: 20220930
  Transmission Date: 20221027
  Serious: Yes (Life-Threatening, Hospitalization, Other)
  Sender: FDA-Public Use
  Company Number: US-ROCHE-3188970

PATIENT
  Age: 69 Year
  Sex: Male
  Weight: 90.346 kg

DRUGS (12)
  1. OCREVUS [Suspect]
     Active Substance: OCRELIZUMAB
     Indication: Primary progressive multiple sclerosis
     Dosage: PARTIAL DOSE ;ONGOING: NO
     Route: 042
     Dates: start: 201710
  2. OCREVUS [Suspect]
     Active Substance: OCRELIZUMAB
     Dosage: FULL DOSE  LAST DOSE MAY-2021 DISCONTINUED BY THE HCP ;ONGOING: NO
     Route: 042
     Dates: start: 201805, end: 202105
  3. BACLOFEN [Concomitant]
     Active Substance: BACLOFEN
  4. AMPYRA [Concomitant]
     Active Substance: DALFAMPRIDINE
  5. HERBALS\TURMERIC [Concomitant]
     Active Substance: HERBALS\TURMERIC
  6. ERGOCALCIFEROL [Concomitant]
     Active Substance: ERGOCALCIFEROL
  7. ASTAXANTHIN [Concomitant]
     Active Substance: ASTAXANTHIN
  8. LEVOTHYROXINE [Concomitant]
     Active Substance: LEVOTHYROXINE
  9. LOVASTATIN [Concomitant]
     Active Substance: LOVASTATIN
  10. TYLENOL [Concomitant]
     Active Substance: ACETAMINOPHEN
  11. COLACE [Concomitant]
     Active Substance: DOCUSATE SODIUM
  12. MODERNA COVID-19 VACCINE [Concomitant]
     Active Substance: ELASOMERAN

REACTIONS (7)
  - Urinary tract infection [Recovered/Resolved]
  - Sepsis [Recovered/Resolved]
  - Clostridium difficile infection [Recovered/Resolved]
  - SARS-CoV-2 antibody test negative [Not Recovered/Not Resolved]
  - Gait inability [Recovered/Resolved]
  - Drug resistance [Not Recovered/Not Resolved]
  - Bladder disorder [Unknown]

NARRATIVE: CASE EVENT DATE: 20210929
